FAERS Safety Report 11649575 (Version 2)
Quarter: 2015Q4

REPORT INFORMATION
  Report Type: Spontaneous
  Country: IT (occurrence: IT)
  Receive Date: 20151021
  Receipt Date: 20151029
  Transmission Date: 20160304
  Serious: Yes (Other)
  Sender: FDA-Public Use
  Company Number: IT-ELI_LILLY_AND_COMPANY-IT201510005441

PATIENT
  Age: 80 Year
  Sex: Female

DRUGS (2)
  1. HUMALOG [Suspect]
     Active Substance: INSULIN LISPRO
     Indication: DIABETES MELLITUS
     Dosage: 16 IU, PRN
     Route: 058
     Dates: start: 20150603
  2. NOVONORM [Concomitant]
     Active Substance: REPAGLINIDE
     Indication: DIABETES MELLITUS
     Dosage: UNK, UNKNOWN
     Route: 065

REACTIONS (2)
  - Hypoglycaemia [Recovered/Resolved]
  - Sopor [Recovered/Resolved]

NARRATIVE: CASE EVENT DATE: 20150603
